FAERS Safety Report 13467442 (Version 1)
Quarter: 2017Q2

REPORT INFORMATION
  Report Type: Spontaneous
  Country: US (occurrence: US)
  Receive Date: 20170421
  Receipt Date: 20170421
  Transmission Date: 20170830
  Serious: No
  Sender: FDA-Public Use
  Company Number: US-TEVA-754070ACC

PATIENT
  Age: 33 Year
  Sex: Female
  Weight: 61.29 kg

DRUGS (2)
  1. TACROLIMUS CREAM [Concomitant]
     Indication: ECZEMA
     Dates: start: 201701
  2. PARAGARD T 380A [Suspect]
     Active Substance: COPPER
     Indication: CONTRACEPTION
     Dates: start: 201605

REACTIONS (2)
  - Allergy to metals [Not Recovered/Not Resolved]
  - Eczema [Not Recovered/Not Resolved]

NARRATIVE: CASE EVENT DATE: 201609
